FAERS Safety Report 5153112-1 (Version None)
Quarter: 2006Q4

REPORT INFORMATION
  Report Type: 
  Country: None (occurrence: None)
  Receive Date: 20061117
  Receipt Date: 20061113
  Transmission Date: 20070319
  Serious: Yes (Hospitalization)
  Sender: FDA-Public Use
  Company Number: AMB222-06-23

PATIENT
  Age: 70 Year
  Sex: Female

DRUGS (11)
  1. FLOLAN [Suspect]
     Indication: PULMONARY HYPERTENSION
     Dosage: 22NGKM CONTINUOUS
     Dates: start: 20060725
  2. INVESTIGATIONAL COMPOUND [Concomitant]
     Indication: PULMONARY HYPERTENSION
     Dates: start: 20050830
  3. SILDENAFIL CITRATE [Concomitant]
     Dosage: 2.5MG THREE TIMES PER DAY
     Dates: start: 20060104
  4. NIFEDIPINE [Concomitant]
  5. WARFARIN SODIUM [Concomitant]
  6. TORSEMIDE [Concomitant]
  7. OXYGEN [Concomitant]
  8. OMEPRAZOLE [Concomitant]
  9. DEXTROPROPOXYPHEN + PARACETAMOL [Concomitant]
  10. TRIAMCINOLONE [Concomitant]
  11. ACETAMINOPHEN [Concomitant]

REACTIONS (6)
  - ANAEMIA [None]
  - ASTHENIA [None]
  - DEHYDRATION [None]
  - DIARRHOEA [None]
  - DISEASE PROGRESSION [None]
  - DYSPNOEA [None]
